FAERS Safety Report 12676655 (Version 1)
Quarter: 2016Q3

REPORT INFORMATION
  Report Type: Spontaneous
  Country: JP (occurrence: JP)
  Receive Date: 20160823
  Receipt Date: 20160823
  Transmission Date: 20161109
  Serious: Yes (Hospitalization, Other)
  Sender: FDA-Public Use
  Company Number: 2016-000863

PATIENT
  Age: 87 Year
  Sex: Female

DRUGS (8)
  1. MAGMITT [Concomitant]
     Active Substance: MAGNESIUM OXIDE
     Dates: start: 20100910
  2. BENET [Suspect]
     Active Substance: RISEDRONATE SODIUM
     Route: 048
     Dates: start: 20160320, end: 2016
  3. TOCOPHEROL ACETATE [Concomitant]
     Active Substance: .ALPHA.-TOCOPHEROL ACETATE
     Dates: start: 20100910
  4. BORRAZA-G [Concomitant]
     Active Substance: LIDOCAINE\TRIBENOSIDE
     Dates: start: 20100910
  5. LOXOPROFEN SODIUM [Concomitant]
     Active Substance: LOXOPROFEN SODIUM
     Dates: end: 20160323
  6. BROMELAIN [Concomitant]
     Active Substance: BROMELAINS
     Dates: start: 20100910
  7. FAMOTIDINE. [Concomitant]
     Active Substance: FAMOTIDINE
     Dates: end: 20160323
  8. NORVASC [Concomitant]
     Active Substance: AMLODIPINE BESYLATE

REACTIONS (7)
  - Blood potassium decreased [Recovered/Resolved]
  - Blood creatine phosphokinase increased [Recovered/Resolved]
  - C-reactive protein increased [Recovered/Resolved]
  - Painful respiration [Recovered/Resolved]
  - Myositis [Recovered/Resolved]
  - Fall [Recovered/Resolved]
  - Pain [Recovered/Resolved]

NARRATIVE: CASE EVENT DATE: 20160321
